FAERS Safety Report 9843401 (Version 1)
Quarter: 2013Q4

REPORT INFORMATION
  Report Type: Spontaneous
  Country: US (occurrence: None)
  Receive Date: 20131223
  Receipt Date: 20131223
  Transmission Date: 20140711
  Serious: No
  Sender: FDA-Public Use
  Company Number: 218554LEO

PATIENT
  Age: 60 Year
  Sex: Female

DRUGS (5)
  1. PICATO 0.015 %, GEL [Suspect]
     Indication: ACTINIC KERATOSIS
     Route: 061
     Dates: start: 20120805
  2. METHOTREXATE (METHOTREXATE) [Concomitant]
  3. ENBREL (ETANERCEPT) [Concomitant]
  4. FOSAMAX (ALENDRONATE SODIUM) [Concomitant]
  5. FOLIC ACID (FOLIC  ACID) [Concomitant]

REACTIONS (4)
  - Application site irritation [None]
  - Application site pain [None]
  - Application site erythema [None]
  - Application site burn [None]
